FAERS Safety Report 5301834-1 (Version None)
Quarter: 2007Q2

REPORT INFORMATION
  Report Type: 
  Country: None (occurrence: None)
  Receive Date: 20070416
  Receipt Date: 20070416
  Transmission Date: 20071010
  Serious: Yes (Life-Threatening, Hospitalization)
  Sender: FDA-Public Use
  Company Number: None

PATIENT
  Age: 64 Year
  Sex: Male
  Weight: 81.6475 kg

DRUGS (1)
  1. REMICADE [Suspect]
     Indication: PSORIATIC ARTHROPATHY
     Dosage: 700MG Q8 WEEKS IV
     Route: 042
     Dates: start: 20030815, end: 20061016

REACTIONS (4)
  - APHASIA [None]
  - CEREBRAL TOXOPLASMOSIS [None]
  - CONVULSION [None]
  - HEMIPLEGIA [None]
